FAERS Safety Report 13488690 (Version 5)
Quarter: 2017Q2

REPORT INFORMATION
  Report Type: Report from Study
  Country: US (occurrence: US)
  Receive Date: 20170427
  Receipt Date: 20170620
  Transmission Date: 20170830
  Serious: Yes (Other)
  Sender: FDA-Public Use
  Company Number: US-AMGEN-USASP2017062770

PATIENT
  Age: 44 Year
  Sex: Female

DRUGS (1)
  1. ENBREL [Suspect]
     Active Substance: ETANERCEPT
     Indication: ANKYLOSING SPONDYLITIS
     Dosage: 50 MG, QWK
     Route: 065
     Dates: start: 201704

REACTIONS (10)
  - Injection site pain [Unknown]
  - Feeling abnormal [Unknown]
  - Drug effect incomplete [Unknown]
  - Pain [Unknown]
  - Headache [Recovered/Resolved]
  - Burning sensation [Unknown]
  - Injection site pruritus [Unknown]
  - Ankylosing spondylitis [Not Recovered/Not Resolved]
  - Fatigue [Not Recovered/Not Resolved]
  - Painful respiration [Unknown]

NARRATIVE: CASE EVENT DATE: 2017
